FAERS Safety Report 9191021 (Version 1)
Quarter: 2013Q1

REPORT INFORMATION
  Report Type: Spontaneous
  Country: FR (occurrence: FR)
  Receive Date: 20130326
  Receipt Date: 20130326
  Transmission Date: 20140127
  Serious: Yes (Life-Threatening)
  Sender: FDA-Public Use
  Company Number: FR-ROCHE-1203748

PATIENT
  Age: 55 Year
  Sex: Female
  Weight: 79 kg

DRUGS (4)
  1. TAMIFLU [Suspect]
     Indication: INFLUENZA
     Route: 048
     Dates: start: 20130222, end: 20130223
  2. SURGAM [Concomitant]
     Route: 048
     Dates: start: 20130221
  3. CLARITHROMYCINE [Concomitant]
     Route: 065
     Dates: start: 20130221
  4. DOLIPRANE [Concomitant]
     Route: 048
     Dates: start: 20130221

REACTIONS (5)
  - Sensory disturbance [Recovered/Resolved]
  - Tachycardia [Recovered/Resolved]
  - Suicidal ideation [Recovered/Resolved]
  - Panic attack [Recovered/Resolved]
  - Agitation [Recovered/Resolved]
